FAERS Safety Report 8552380-3 (Version None)
Quarter: 2012Q3

REPORT INFORMATION
  Report Type: 
  Country: None (occurrence: None)
  Receive Date: 20120723
  Receipt Date: 20120723
  Transmission Date: 20120928
  Serious: Yes (Hospitalization)
  Sender: FDA-Public Use
  Company Number: None

PATIENT
  Sex: Male
  Weight: 84 kg

DRUGS (3)
  1. ... [Concomitant]
     Dosage: 2875 MG
     Dates: end: 20110224
  2. PACLITAXEL [Suspect]
     Dosage: 760 MG
     Dates: end: 20110210
  3. CARBOPLATIN [Suspect]
     Dosage: 1293 MG
     Dates: end: 20110210

REACTIONS (2)
  - NEUTROPENIA [None]
  - WHITE BLOOD CELL COUNT DECREASED [None]
